FAERS Safety Report 25312267 (Version 1)
Quarter: 2025Q2

REPORT INFORMATION
  Report Type: Spontaneous
  Country: US (occurrence: US)
  Receive Date: 20250514
  Receipt Date: 20250514
  Transmission Date: 20250717
  Serious: No
  Sender: TAKEDA
  Company Number: US-TAKEDA-2025TUS045475

PATIENT

DRUGS (2)
  1. ARALAST NP [Suspect]
     Active Substance: .ALPHA.1-PROTEINASE INHIBITOR HUMAN
     Indication: Product used for unknown indication
     Dosage: 200 INTERNATIONAL UNIT, 2/WEEK
  2. ARALAST NP [Suspect]
     Active Substance: .ALPHA.1-PROTEINASE INHIBITOR HUMAN

REACTIONS (2)
  - No adverse event [Unknown]
  - Product prescribing error [Unknown]
